FAERS Safety Report 25441727 (Version 1)
Quarter: 2025Q2

REPORT INFORMATION
  Report Type: Spontaneous
  Country: DE (occurrence: DE)
  Receive Date: 20250616
  Receipt Date: 20250616
  Transmission Date: 20250717
  Serious: Yes (Hospitalization, Other)
  Sender: PFIZER
  Company Number: DE-SANDOZ-SDZ2025DE039781

PATIENT
  Sex: Female

DRUGS (13)
  1. XELJANZ [Suspect]
     Active Substance: TOFACITINIB CITRATE
     Route: 065
     Dates: start: 20210908, end: 20220315
  2. METHOTREXATE SODIUM [Suspect]
     Active Substance: METHOTREXATE SODIUM
     Route: 048
     Dates: start: 20170215
  3. CELECOXIB [Suspect]
     Active Substance: CELECOXIB
     Route: 065
     Dates: start: 20200225
  4. CELECOXIB [Suspect]
     Active Substance: CELECOXIB
     Route: 065
     Dates: start: 20200225
  5. IBUPROFEN [Suspect]
     Active Substance: IBUPROFEN
     Route: 065
     Dates: start: 20210108, end: 20210111
  6. COSENTYX [Suspect]
     Active Substance: SECUKINUMAB
     Route: 065
     Dates: start: 20170503, end: 20200115
  7. COSENTYX [Suspect]
     Active Substance: SECUKINUMAB
     Route: 065
     Dates: start: 20170503
  8. MELOXICAM [Suspect]
     Active Substance: MELOXICAM
     Route: 065
     Dates: start: 20090101, end: 20150225
  9. MELOXICAM [Suspect]
     Active Substance: MELOXICAM
     Route: 065
  10. TALTZ [Suspect]
     Active Substance: IXEKIZUMAB
     Route: 065
     Dates: start: 20200212, end: 20200812
  11. TREMFYA [Suspect]
     Active Substance: GUSELKUMAB
     Route: 065
     Dates: start: 20210309, end: 20210730
  12. RINVOQ [Suspect]
     Active Substance: UPADACITINIB
     Route: 065
     Dates: start: 20220320, end: 20221231
  13. RINVOQ [Suspect]
     Active Substance: UPADACITINIB
     Route: 065
     Dates: start: 20230108

REACTIONS (1)
  - Removal of internal fixation [Unknown]
